FAERS Safety Report 9949344 (Version 1)
Quarter: 2014Q1

REPORT INFORMATION
  Report Type: Spontaneous
  Country: US (occurrence: US)
  Receive Date: 20140304
  Receipt Date: 20140304
  Transmission Date: 20141002
  Serious: Yes (Other)
  Sender: FDA-Public Use
  Company Number: US-AMGEN-USASP2014013847

PATIENT
  Age: 81 Year
  Sex: Female

DRUGS (2)
  1. PROLIA [Suspect]
     Indication: PRODUCT USED FOR UNKNOWN INDICATION
     Dosage: UNK
     Route: 065
     Dates: start: 2013
  2. ASPIRIN [Concomitant]
     Indication: MYOCARDIAL INFARCTION
     Dosage: 81 MG, UNK

REACTIONS (7)
  - Transient ischaemic attack [Recovered/Resolved]
  - Paraesthesia oral [Unknown]
  - Paraesthesia [Unknown]
  - Oral discomfort [Unknown]
  - Muscle twitching [Unknown]
  - Muscle spasms [Unknown]
  - Blood calcium increased [Unknown]
